FAERS Safety Report 4511423-4 (Version None)
Quarter: 2004Q4

REPORT INFORMATION
  Report Type: 
  Country: None (occurrence: None)
  Receive Date: 20041129
  Receipt Date: 20040805
  Transmission Date: 20050328
  Serious: No
  Sender: FDA-Public Use
  Company Number: US-BRISTOL-MYERS SQUIBB COMPANY-12663407

PATIENT
  Age: 46 Year
  Sex: Female
  Weight: 70 kg

DRUGS (9)
  1. ABILIFY [Suspect]
     Indication: HALLUCINATION, VISUAL
     Dosage: IN MAY-2004 THE PATIENT BEGAN TAKING ARIPIPRAZOLE AT A LOW DOSE ONCE DAILY.
     Route: 048
     Dates: start: 20040501
  2. ABILIFY [Suspect]
     Indication: PARANOIA
     Dosage: IN MAY-2004 THE PATIENT BEGAN TAKING ARIPIPRAZOLE AT A LOW DOSE ONCE DAILY.
     Route: 048
     Dates: start: 20040501
  3. TRILEPTAL [Concomitant]
  4. TRAZODONE HCL [Concomitant]
  5. LAMICTAL [Concomitant]
  6. LORAZEPAM [Concomitant]
  7. NASACORT [Concomitant]
  8. FLEXERIL [Concomitant]
  9. LEVOXYL [Concomitant]

REACTIONS (1)
  - TARDIVE DYSKINESIA [None]
